FAERS Safety Report 17515319 (Version 1)
Quarter: 2020Q1

REPORT INFORMATION
  Report Type: Report from Study
  Country: US (occurrence: US)
  Receive Date: 20200309
  Receipt Date: 20200309
  Transmission Date: 20200409
  Serious: Yes (Other)
  Sender: FDA-Public Use
  Company Number: US-ROCHE-2563885

PATIENT
  Sex: Male
  Weight: 108.05 kg

DRUGS (1)
  1. ALECENSA [Suspect]
     Active Substance: ALECTINIB HYDROCHLORIDE
     Indication: LUNG NEOPLASM MALIGNANT
     Dosage: TAKE 3 CAPSULE(S) BY MOUTH TWICE A DAY
     Route: 048

REACTIONS (2)
  - Intestinal obstruction [Unknown]
  - Wheezing [Unknown]
